FAERS Safety Report 11490708 (Version 1)
Quarter: 2015Q3

REPORT INFORMATION
  Report Type: Report from Study
  Country: IN (occurrence: IN)
  Receive Date: 20150910
  Receipt Date: 20150910
  Transmission Date: 20151125
  Serious: Yes (Other)
  Sender: FDA-Public Use
  Company Number: IN-BAXTER-2014BAX025986

PATIENT
  Age: 62 Year
  Sex: Male
  Weight: 41 kg

DRUGS (2)
  1. INSULIN [Concomitant]
     Active Substance: INSULIN NOS
     Indication: DIABETES MELLITUS
  2. DIANEAL PD-2 PERITONEAL DIALYSIS SOLUTION WITH DEXTROSE [Suspect]
     Active Substance: CALCIUM CHLORIDE\DEXTROSE\MAGNESIUM CHLORIDE\SODIUM CHLORIDE\SODIUM LACTATE
     Indication: PERITONEAL DIALYSIS
     Dosage: 3 BAGS (2 LITERS EACH)
     Route: 033
     Dates: start: 20130723

REACTIONS (5)
  - Constipation [Unknown]
  - Hypophagia [Not Recovered/Not Resolved]
  - Dehydration [Unknown]
  - Bedridden [Not Recovered/Not Resolved]
  - Blood albumin decreased [Not Recovered/Not Resolved]
